FAERS Safety Report 19060937 (Version 1)
Quarter: 2021Q1

REPORT INFORMATION
  Report Type: Report from Study
  Country: NL (occurrence: NL)
  Receive Date: 20210325
  Receipt Date: 20210325
  Transmission Date: 20210420
  Serious: Yes (Other)
  Sender: FDA-Public Use
  Company Number: NL-JNJFOC-20210330337

PATIENT
  Sex: Female

DRUGS (1)
  1. MACITENTAN [Suspect]
     Active Substance: MACITENTAN
     Indication: PULMONARY ARTERIAL HYPERTENSION
     Route: 048

REACTIONS (10)
  - Ear discomfort [Unknown]
  - Fatigue [Unknown]
  - Liver disorder [Unknown]
  - Biliary tract disorder [Unknown]
  - Gingival pain [Unknown]
  - Nasopharyngitis [Unknown]
  - Heart rate decreased [Unknown]
  - Platelet count decreased [Unknown]
  - Vomiting [Unknown]
  - Diarrhoea [Unknown]
